FAERS Safety Report 5536724-2 (Version None)
Quarter: 2007Q4

REPORT INFORMATION
  Report Type: 
  Country: None (occurrence: None)
  Receive Date: 20071206
  Receipt Date: 20070508
  Transmission Date: 20080405
  Serious: Yes (Life-Threatening, Other)
  Sender: FDA-Public Use
  Company Number: US-AMGEN-KDL140531

PATIENT
  Sex: Female

DRUGS (3)
  1. ENBREL [Suspect]
     Indication: RHEUMATOID ARTHRITIS
     Route: 058
     Dates: start: 20030218, end: 20050422
  2. ARAVA [Concomitant]
     Dates: start: 20020101, end: 20050422
  3. PREDNISONE TAB [Concomitant]

REACTIONS (1)
  - NON-HODGKIN'S LYMPHOMA [None]
